FAERS Safety Report 13023813 (Version 1)
Quarter: 2016Q4

REPORT INFORMATION
  Report Type: Spontaneous
  Country: US (occurrence: US)
  Receive Date: 20161212
  Receipt Date: 20161212
  Transmission Date: 20170207
  Serious: No
  Sender: FDA-Public Use
  Company Number: None

PATIENT
  Age: 22 Year
  Sex: Female

DRUGS (18)
  1. IBUPROFEN. [Concomitant]
     Active Substance: IBUPROFEN
  2. MULTIVITAMIN [Concomitant]
     Active Substance: VITAMINS
  3. SULFAMETHOXAZOLE/TRIMETHOPRIM [Concomitant]
     Active Substance: SULFAMETHOXAZOLE\TRIMETHOPRIM
  4. LIDOCAINE. [Concomitant]
     Active Substance: LIDOCAINE
  5. PREGABALIN. [Concomitant]
     Active Substance: PREGABALIN
  6. ACETAMINOPHEN. [Concomitant]
     Active Substance: ACETAMINOPHEN
  7. SENNA [Concomitant]
     Active Substance: SENNA LEAF\SENNOSIDES\SENNOSIDES A AND B
  8. ONDANSETRON [Concomitant]
     Active Substance: ONDANSETRON
  9. TRAMADOL. [Concomitant]
     Active Substance: TRAMADOL
  10. RITUXIMAB [Suspect]
     Active Substance: RITUXIMAB
     Indication: PRODUCT USED FOR UNKNOWN INDICATION
     Route: 042
     Dates: start: 20161025
  11. AMITRIPTYLINE [Concomitant]
     Active Substance: AMITRIPTYLINE
  12. DULOXETINE. [Concomitant]
     Active Substance: DULOXETINE
  13. LANSOPRAZOLE. [Concomitant]
     Active Substance: LANSOPRAZOLE
  14. PREDNISONE. [Concomitant]
     Active Substance: PREDNISONE
  15. AMOXICILLIN. [Concomitant]
     Active Substance: AMOXICILLIN
  16. CLARITHROMYCIN. [Concomitant]
     Active Substance: CLARITHROMYCIN
  17. DOCUSATE [Concomitant]
     Active Substance: DOCUSATE
  18. HYDROMORPHONE [Concomitant]
     Active Substance: HYDROMORPHONE

REACTIONS (8)
  - Infusion related reaction [None]
  - Nausea [None]
  - Hot flush [None]
  - Tachycardia [None]
  - Dyspnoea [None]
  - Diplopia [None]
  - Chest discomfort [None]
  - Chest pain [None]

NARRATIVE: CASE EVENT DATE: 20161025
